FAERS Safety Report 8987468 (Version 1)
Quarter: 2012Q4

REPORT INFORMATION
  Report Type: 
  Country: SE (occurrence: SE)
  Receive Date: 20121227
  Receipt Date: 20121227
  Transmission Date: 20130627
  Serious: Yes (Hospitalization)
  Sender: FDA-Public Use
  Company Number: SE-JNJFOC-20121210417

PATIENT
  Age: 88 Year
  Sex: Female

DRUGS (11)
  1. REMICADE [Suspect]
     Indication: RHEUMATOID ARTHRITIS
     Route: 042
     Dates: start: 2003, end: 2008
  2. METHOTREXATE [Suspect]
     Indication: RHEUMATOID ARTHRITIS
     Route: 065
     Dates: start: 201205, end: 20120601
  3. METHOTREXATE [Suspect]
     Indication: RHEUMATOID ARTHRITIS
     Route: 065
     Dates: start: 2008, end: 201203
  4. ALVEDON [Concomitant]
     Route: 065
  5. ALENAT [Concomitant]
     Route: 065
  6. VESICARE [Concomitant]
     Route: 065
  7. OMEPRAZOLE [Concomitant]
     Route: 065
  8. ZOPIKLON [Concomitant]
     Route: 065
  9. FOLACIN [Concomitant]
     Route: 065
  10. BEHEPAN [Concomitant]
     Route: 065
  11. KALCIPOS [Concomitant]
     Route: 048

REACTIONS (1)
  - Hepatic cancer [Not Recovered/Not Resolved]
